FAERS Safety Report 9265899 (Version 2)
Quarter: 2013Q2

REPORT INFORMATION
  Report Type: Spontaneous
  Country: US (occurrence: US)
  Receive Date: 20130501
  Receipt Date: 20130605
  Transmission Date: 20140414
  Serious: Yes (Other)
  Sender: FDA-Public Use
  Company Number: US-FRI-1000044747

PATIENT
  Age: 47 Year
  Sex: Male

DRUGS (6)
  1. VIIBRYD [Suspect]
     Indication: DEPRESSION
     Dosage: 10MG
     Route: 048
     Dates: start: 201209, end: 201210
  2. VIIBRYD [Suspect]
     Indication: PAIN
     Dosage: 20MG
     Route: 048
     Dates: start: 201210, end: 201211
  3. VIIBRYD [Suspect]
     Dosage: 30MG
     Route: 048
     Dates: start: 201211, end: 201301
  4. VIIBRYD [Suspect]
     Dosage: 30MG
     Route: 048
     Dates: start: 201301, end: 201304
  5. VIIBRYD [Suspect]
     Indication: DEPRESSION
     Dosage: 20MG
     Route: 048
     Dates: start: 201304, end: 201305
  6. VIIBRYD [Suspect]
     Indication: PAIN
     Dosage: 10MG AM, 20MG PM
     Route: 048
     Dates: start: 201305

REACTIONS (4)
  - Pulmonary hypertension [Not Recovered/Not Resolved]
  - Mania [Recovered/Resolved]
  - Agitation [Recovered/Resolved]
  - Diarrhoea [Recovered/Resolved]
